FAERS Safety Report 9372735 (Version 1)
Quarter: 2013Q2

REPORT INFORMATION
  Report Type: Report from Study
  Country: US (occurrence: US)
  Receive Date: 20130627
  Receipt Date: 20130627
  Transmission Date: 20140414
  Serious: Yes (Death)
  Sender: FDA-Public Use
  Company Number: US-MYLANLABS-2013S1007141

PATIENT
  Age: 54 Year
  Sex: Male

DRUGS (11)
  1. CLOZAPINE TABLETS [Suspect]
     Route: 048
     Dates: start: 20110225
  2. AMLODIPINE [Concomitant]
  3. BENZTROPINE [Concomitant]
  4. METAMUCIL [Concomitant]
  5. CLONAZEPAM [Concomitant]
  6. LEVOTHYROXINE [Concomitant]
  7. LIDODERM PATCH [Concomitant]
  8. SIMVASTATIN [Concomitant]
  9. MVI [Concomitant]
  10. RENVELA [Concomitant]
  11. TERAZOSIN [Concomitant]

REACTIONS (1)
  - Death [Fatal]
